FAERS Safety Report 8976503 (Version 1)
Quarter: 2012Q4

REPORT INFORMATION
  Report Type: 
  Country: US (occurrence: US)
  Receive Date: 20121220
  Receipt Date: 20121220
  Transmission Date: 20130627
  Serious: Yes (Hospitalization)
  Sender: FDA-Public Use
  Company Number: US-TEVA-376842USA

PATIENT
  Sex: Male

DRUGS (2)
  1. AMPHETAMINE W/DEXTROAMPHETAMINE [Suspect]
     Indication: ATTENTION DEFICIT/HYPERACTIVITY DISORDER
  2. NALTREXONE [Suspect]

REACTIONS (3)
  - Somnolence [Unknown]
  - Sexual dysfunction [Unknown]
  - Drug ineffective [Unknown]
